FAERS Safety Report 6805541-5 (Version None)
Quarter: 2010Q2

REPORT INFORMATION
  Report Type: 
  Country: None (occurrence: None)
  Receive Date: 20100628
  Receipt Date: 20080109
  Transmission Date: 20101027
  Serious: No
  Sender: FDA-Public Use
  Company Number: US-PFIZER INC-2008003255

PATIENT

DRUGS (1)
  1. GEODON [Suspect]

REACTIONS (1)
  - MUSCULOSKELETAL DISCOMFORT [None]
